FAERS Safety Report 9774500 (Version 1)
Quarter: 2013Q4

REPORT INFORMATION
  Report Type: Report from Study
  Country: FR (occurrence: FR)
  Receive Date: 20131220
  Receipt Date: 20131220
  Transmission Date: 20140711
  Serious: Yes (Other)
  Sender: FDA-Public Use
  Company Number: FR-BAXTER-2013BAX051712

PATIENT
  Sex: Female

DRUGS (5)
  1. SEVOFLURANE BAXTER 1 ML/ML, LIQUIDE POUR INHALATION PAR VAPEUR [Suspect]
     Indication: INDUCTION OF ANAESTHESIA
     Route: 055
  2. LACTATED RINGER^S [Suspect]
     Indication: PRODUCT USED FOR UNKNOWN INDICATION
     Route: 042
  3. REMIFENTANIL [Suspect]
     Indication: PRODUCT USED FOR UNKNOWN INDICATION
     Dosage: 3.5 NG.ML-1
     Route: 065
  4. CISATRACURIUM [Suspect]
     Indication: PRODUCT USED FOR UNKNOWN INDICATION
     Route: 065
  5. PROPOFOL [Suspect]
     Indication: LARYNGOSPASM
     Route: 040

REACTIONS (1)
  - Laryngospasm [Recovered/Resolved]
